FAERS Safety Report 6137270-8 (Version None)
Quarter: 2009Q1

REPORT INFORMATION
  Report Type: 
  Country: None (occurrence: None)
  Receive Date: 20090326
  Receipt Date: 20090326
  Transmission Date: 20090719
  Serious: Yes (Death)
  Sender: FDA-Public Use
  Company Number: None

PATIENT
  Age: 41 Year
  Sex: Male
  Weight: 61.6 kg

DRUGS (2)
  1. ABRAXANE [Suspect]
     Indication: MALIGNANT MELANOMA
     Dosage: 170MG EVERY WEEK X 3 IV
     Route: 042
     Dates: start: 20090115, end: 20090121
  2. SORAFENIB 200MG BAYER [Suspect]
     Indication: MALIGNANT MELANOMA
     Dosage: 800MG EVERY DAY 2-27 PO
     Route: 048
     Dates: start: 20090115, end: 20090121

REACTIONS (8)
  - ASCITES [None]
  - BREATH SOUNDS ABNORMAL [None]
  - DISEASE PROGRESSION [None]
  - FACIAL WASTING [None]
  - HEPATOMEGALY [None]
  - OEDEMA PERIPHERAL [None]
  - OXYGEN SATURATION DECREASED [None]
  - PLEURAL EFFUSION [None]
